FAERS Safety Report 7463097-0 (Version None)
Quarter: 2011Q2

REPORT INFORMATION
  Report Type: 
  Country: None (occurrence: None)
  Receive Date: 20110506
  Receipt Date: 20110502
  Transmission Date: 20111010
  Serious: Yes (Death)
  Sender: FDA-Public Use
  Company Number: US-ROCHE-657783

PATIENT
  Sex: Female
  Weight: 121 kg

DRUGS (14)
  1. NEXIUM [Concomitant]
  2. ACTEMRA [Suspect]
     Indication: RHEUMATOID ARTHRITIS
     Dosage: FORM: INFUSION.
     Route: 042
     Dates: start: 20081209
  3. ACTEMRA [Suspect]
     Route: 042
     Dates: start: 20090108
  4. HYZAAR [Concomitant]
     Indication: HYPERTENSION
  5. SKELAXIN [Concomitant]
  6. SINGULAIR [Concomitant]
     Indication: ASTHMA
  7. XYZAL [Concomitant]
  8. ARAVA [Concomitant]
  9. FLONASE [Concomitant]
     Dosage: TDD: 2 SQUIRTS
  10. XANAX [Concomitant]
     Indication: POST-TRAUMATIC STRESS DISORDER
  11. ZOLOFT [Concomitant]
     Indication: POST-TRAUMATIC STRESS DISORDER
  12. TRILEPTAL [Concomitant]
     Dosage: FREQUENCY: QD
     Route: 048
     Dates: start: 20090325
  13. LIPITOR [Concomitant]
  14. AMBIEN [Concomitant]
     Indication: INSOMNIA

REACTIONS (1)
  - CARDIAC ARREST [None]
